FAERS Safety Report 6522343-8 (Version None)
Quarter: 2009Q4

REPORT INFORMATION
  Report Type: 
  Country: None (occurrence: None)
  Receive Date: 20091230
  Receipt Date: 20091217
  Transmission Date: 20100525
  Serious: Yes (Death)
  Sender: FDA-Public Use
  Company Number: B0621614A

PATIENT

DRUGS (3)
  1. MELPHALAN [Suspect]
     Indication: MULTIPLE MYELOMA
     Route: 065
  2. FLUDARABINE [Suspect]
  3. CYCLOPHOSPHAMIDE [Suspect]
     Route: 065

REACTIONS (1)
  - DEATH [None]
